FAERS Safety Report 19860835 (Version 1)
Quarter: 2021Q3

REPORT INFORMATION
  Report Type: Spontaneous
  Country: ES (occurrence: ES)
  Receive Date: 20210921
  Receipt Date: 20210921
  Transmission Date: 20211014
  Serious: Yes (Hospitalization)
  Sender: FDA-Public Use
  Company Number: ES-B.I. PHARMACEUTICALS,INC./RIDGEFIELD-2021-BI-127872

PATIENT
  Age: 81 Year
  Sex: Female

DRUGS (14)
  1. KEPPRA [Concomitant]
     Active Substance: LEVETIRACETAM
     Indication: EPILEPSY
     Dosage: 500.0 MG AT BREAKFAST DINNER
     Route: 048
     Dates: start: 20210728
  2. ROCALTROL [Concomitant]
     Active Substance: CALCITRIOL
     Indication: HYPERPARATHYROIDISM SECONDARY
     Dosage: 0.25 MCG AT BREAKFAST?DINNER
     Route: 048
     Dates: start: 20170801
  3. PRADAXA [Suspect]
     Active Substance: DABIGATRAN ETEXILATE MESYLATE
     Indication: CEREBROVASCULAR DISORDER
     Dosage: 110.0 MG EVERY 12 H
     Route: 048
     Dates: start: 20210728
  4. AMLODIPINO RATIOPHARM [Concomitant]
     Active Substance: AMLODIPINE BESYLATE
     Indication: ESSENTIAL HYPERTENSION
     Dosage: 5.0 MG AT DINNER
     Route: 048
     Dates: start: 20190227
  5. ALPHAGAN P [Concomitant]
     Active Substance: BRIMONIDINE TARTRATE
     Indication: GLAUCOMA
     Dosage: 1.0 DROPS EVERY 12 H
     Route: 047
     Dates: start: 20160524
  6. LAMICTAL [Concomitant]
     Active Substance: LAMOTRIGINE
     Indication: EPILEPSY
     Dosage: 100.0 MG AT LUNCH?BREAKFAST DINNER
     Route: 048
     Dates: start: 20090925
  7. ATROVENT [Concomitant]
     Active Substance: IPRATROPIUM BROMIDE
     Indication: ESSENTIAL HYPERTENSION
     Dosage: 40.0 MCG EVERY 8 HOURS
     Route: 050
     Dates: start: 20170227
  8. HIDROFEROL [Concomitant]
     Active Substance: CALCIFEDIOL
     Indication: VITAMIN D DEFICIENCY
     Dosage: 16000.0 IU EVERY 30 DAYS
     Route: 048
     Dates: start: 20170802
  9. NITROPLAST [Concomitant]
     Active Substance: NITROGLYCERIN
     Indication: OBSTRUCTIVE AIRWAYS DISORDER
     Dosage: 5.0 MG EVERY 24 H
     Dates: start: 20200514
  10. OMEPRAZOLE. [Concomitant]
     Active Substance: OMEPRAZOLE
     Indication: PRODUCT USED FOR UNKNOWN INDICATION
     Dosage: 20.0 MG AT LUNCH?BREAKFAST
     Route: 048
     Dates: start: 20091020
  11. FOSTER [Concomitant]
     Active Substance: BECLOMETHASONE\FORMOTEROL
     Indication: OBSTRUCTIVE AIRWAYS DISORDER
     Dosage: 1.0 PUFF EVERY 12 H
     Route: 050
     Dates: start: 20190325
  12. EUTIROX [Concomitant]
     Active Substance: LEVOTHYROXINE SODIUM
     Indication: HYPOTHYROIDISM
     Dosage: 50.0 MCG AT LUNCH?BREAKFAST
     Route: 048
     Dates: start: 20150416
  13. ENALAPRIL CINFA [Concomitant]
     Active Substance: ENALAPRIL
     Indication: CARDIAC FAILURE
     Dosage: 10.0 MG AT BREAKFAST
     Route: 048
     Dates: start: 20190227
  14. FUROSEMIDA [FUROSEMIDE] [Concomitant]
     Active Substance: FUROSEMIDE
     Indication: CHRONIC LEFT VENTRICULAR FAILURE
     Dosage: MG IRREGULAR
     Route: 048
     Dates: start: 20160618

REACTIONS (3)
  - Gastrointestinal haemorrhage [Recovering/Resolving]
  - Haematemesis [Recovering/Resolving]
  - Asthenia [Recovering/Resolving]

NARRATIVE: CASE EVENT DATE: 20210822
